FAERS Safety Report 16266932 (Version 2)
Quarter: 2020Q1

REPORT INFORMATION
  Report Type: Spontaneous
  Country: US (occurrence: US)
  Receive Date: 20190502
  Receipt Date: 20200227
  Transmission Date: 20200409
  Serious: No
  Sender: FDA-Public Use
  Company Number: US-SA-2019SA118247

PATIENT
  Sex: Female

DRUGS (1)
  1. DUPIXENT [Suspect]
     Active Substance: DUPILUMAB
     Indication: ECZEMA
     Dosage: 300 MG/2ML, QOW
     Route: 058
     Dates: start: 20190220

REACTIONS (2)
  - Product dose omission [Unknown]
  - Therapeutic response decreased [Not Recovered/Not Resolved]
